FAERS Safety Report 7873939-2 (Version None)
Quarter: 2011Q4

REPORT INFORMATION
  Report Type: 
  Country: None (occurrence: None)
  Receive Date: 20111030
  Receipt Date: 20110512
  Transmission Date: 20120403
  Serious: No
  Sender: FDA-Public Use
  Company Number: US-AMGEN-USASP2011024737

PATIENT
  Age: 39 Year
  Sex: Female

DRUGS (3)
  1. PREDNISONE [Concomitant]
  2. METHOTREXATE [Concomitant]
     Dates: start: 20090101
  3. ENBREL [Suspect]
     Indication: RHEUMATOID ARTHRITIS
     Dosage: 50 MG, QWK
     Dates: start: 20110505

REACTIONS (5)
  - PARAESTHESIA ORAL [None]
  - STOMATITIS [None]
  - CHEILITIS [None]
  - GLOSSITIS [None]
  - FEELING ABNORMAL [None]
